FAERS Safety Report 17093400 (Version 1)
Quarter: 2019Q4

REPORT INFORMATION
  Report Type: Spontaneous
  Country: BE (occurrence: BE)
  Receive Date: 20191129
  Receipt Date: 20191129
  Transmission Date: 20200122
  Serious: Yes (Death, Life-Threatening, Hospitalization)
  Sender: FDA-Public Use
  Company Number: NVSC2019BE046132

PATIENT
  Age: 63 Year
  Sex: Female
  Weight: 62 kg

DRUGS (7)
  1. TRADONAL [Suspect]
     Active Substance: TRAMADOL HYDROCHLORIDE
     Indication: BACK PAIN
     Dosage: 3 DF, QD
     Route: 048
     Dates: start: 20190820
  2. BEFACT FORTE [Concomitant]
     Indication: PARAESTHESIA
     Dosage: 2 DF, QD
     Route: 048
     Dates: start: 20190820
  3. PERINDOPRIL ARGININE [Suspect]
     Active Substance: PERINDOPRIL ARGININE
     Indication: HYPERTENSION
  4. BISOPROLOL [Suspect]
     Active Substance: BISOPROLOL
     Indication: MYOCARDIAL INFARCTION
     Dosage: 2.5 MG, QD
     Route: 048
  5. TOTALIP [Suspect]
     Active Substance: ATORVASTATIN
     Indication: HYPERCHOLESTEROLAEMIA
     Dosage: 1 DF, QD
     Route: 048
  6. ASAFLOW [Concomitant]
     Active Substance: ASPIRIN
     Indication: MYOCARDIAL INFARCTION
     Dosage: 1 DF, QD
     Route: 048
  7. PERINDOPRIL ARGININE [Suspect]
     Active Substance: PERINDOPRIL ARGININE
     Indication: MYOCARDIAL INFARCTION
     Dosage: 1 DF, QD
     Route: 048

REACTIONS (4)
  - Vertigo [Fatal]
  - Vomiting [Fatal]
  - Pancreatitis acute [Fatal]
  - Abdominal pain upper [Fatal]

NARRATIVE: CASE EVENT DATE: 20190820
